FAERS Safety Report 23343682 (Version 1)
Quarter: 2023Q4

REPORT INFORMATION
  Report Type: Report from Study
  Country: DE (occurrence: US)
  Receive Date: 20231227
  Receipt Date: 20231227
  Transmission Date: 20240110
  Serious: Yes (Other)
  Sender: FDA-Public Use
  Company Number: DE-Stemline Therapeutics, Inc.-2023ST004348

PATIENT
  Age: 72 Year
  Sex: Male

DRUGS (11)
  1. DEXAMETHASONE [Suspect]
     Active Substance: DEXAMETHASONE
     Indication: Plasma cell myeloma
     Route: 065
     Dates: start: 20231009
  2. BORTEZOMIB [Suspect]
     Active Substance: BORTEZOMIB
     Indication: Plasma cell myeloma
     Route: 065
     Dates: start: 20231009
  3. SELINEXOR [Suspect]
     Active Substance: SELINEXOR
     Indication: Plasma cell myeloma
     Route: 065
     Dates: start: 20231009
  4. NETUPITANT [Concomitant]
     Active Substance: NETUPITANT
     Indication: Prophylaxis
     Dates: start: 20231009
  5. CALCIUMCARBONAT [Concomitant]
     Indication: Prophylaxis
     Dates: start: 20180417
  6. CHOLECALCIFEROL [Concomitant]
     Active Substance: CHOLECALCIFEROL
     Indication: Prophylaxis
     Dates: start: 20180417
  7. ACYCLOVIR [Concomitant]
     Active Substance: ACYCLOVIR
     Indication: Prophylaxis
     Dosage: THREE TIMES A DAY
     Dates: start: 20180417
  8. ASPIRIN [Concomitant]
     Active Substance: ASPIRIN
     Indication: Malignant melanoma
  9. PALONOSETRON [Concomitant]
     Active Substance: PALONOSETRON
     Indication: Prophylaxis
     Dates: start: 20231009
  10. TIMOLOL [Concomitant]
     Active Substance: TIMOLOL
     Indication: Malignant melanoma
     Dates: start: 2010
  11. METAMIZOL [Concomitant]
     Active Substance: METAMIZOLE SODIUM
     Indication: Prophylaxis
     Dosage: P.R.N. (AS NEEDED)
     Dates: start: 20190522

REACTIONS (1)
  - Thrombocytopenia [Not Recovered/Not Resolved]

NARRATIVE: CASE EVENT DATE: 20231016
